FAERS Safety Report 4598716-X (Version None)
Quarter: 2005Q1

REPORT INFORMATION
  Report Type: 
  Country: None (occurrence: None)
  Receive Date: 20050302
  Receipt Date: 20050214
  Transmission Date: 20050727
  Serious: Yes (Other)
  Sender: FDA-Public Use
  Company Number: 206922

PATIENT
  Age: 53 Year
  Sex: Female
  Weight: 68.0396 kg

DRUGS (17)
  1. AVONEX [Suspect]
     Dosage: 30 UG; QW; IM
     Route: 030
  2. PEPCID [Concomitant]
  3. HYDROCHLOROTHIAZIDE [Concomitant]
  4. KLONOPIN [Concomitant]
  5. PREMARIN [Concomitant]
  6. BACLOFEN [Concomitant]
  7. OXYCONTIN [Concomitant]
  8. HYDROCODONE/ACETAMINOPHEN [Concomitant]
  9. CYANOCOBALAMIN [Concomitant]
  10. ALPRAZOLAM [Concomitant]
  11. CONCERTA [Concomitant]
  12. METHYLPHENIDATE [Concomitant]
  13. FLUOXETINE [Concomitant]
  14. ACETAMINOPHEN W/ CODEINE [Concomitant]
  15. MORPHINE SULFATE [Concomitant]
  16. CAPITROL [Concomitant]
  17. METROGEL [Concomitant]

REACTIONS (7)
  - ANXIETY [None]
  - ARTHRALGIA [None]
  - DEPRESSION [None]
  - HYPOAESTHESIA [None]
  - INFLUENZA LIKE ILLNESS [None]
  - MALIGNANT MELANOMA [None]
  - MEMORY IMPAIRMENT [None]
